FAERS Safety Report 7658896-6 (Version None)
Quarter: 2011Q3

REPORT INFORMATION
  Report Type: 
  Country: None (occurrence: None)
  Receive Date: 20110802
  Receipt Date: 20110720
  Transmission Date: 20111222
  Serious: Yes (Hospitalization)
  Sender: FDA-Public Use
  Company Number: DEP_00502_2011

PATIENT
  Age: 58 Year
  Sex: Male

DRUGS (17)
  1. KETAMINE HCL [Suspect]
     Indication: PERIOPERATIVE ANALGESIA
     Dosage: (A TOTAL OF  100 MG INTRAVENOUS (NOT OTHERWISE SPECIFIED))
     Route: 042
  2. FENTANYL [Concomitant]
  3. GABAPENTIN [Suspect]
     Indication: PAIN
     Dosage: (900 MG TID)
  4. METFORMIN HCL [Concomitant]
  5. ZOLPIDEM TARTRATE [Concomitant]
  6. MIDAZOLAM HCL [Concomitant]
  7. PROPOFOL [Concomitant]
  8. SENNA /00142201/ [Concomitant]
  9. HYDROCHLOROTHIAZIDE [Concomitant]
  10. TOLTERODINE TARTRATE [Concomitant]
  11. FERROUS SULFATE TAB [Concomitant]
  12. LISINOPRIL [Concomitant]
  13. WARFARIN SODIUM [Concomitant]
  14. SUCCINYLCHOLINE CHLORIDE [Concomitant]
  15. BUDESONIDE W/FORMOTEROL FUMARATE [Concomitant]
  16. ALBUTEROL [Concomitant]
  17. OMEPRAZOLE [Concomitant]

REACTIONS (25)
  - MOTOR DYSFUNCTION [None]
  - INTRASPINAL ABSCESS [None]
  - AREFLEXIA [None]
  - HYPOTONIA [None]
  - DYSARTHRIA [None]
  - THROMBOSIS [None]
  - DRUG EFFECT PROLONGED [None]
  - INFECTION [None]
  - SPINAL HAEMATOMA [None]
  - PCO2 INCREASED [None]
  - DISSOCIATION [None]
  - DRUG INEFFECTIVE [None]
  - DEPRESSED LEVEL OF CONSCIOUSNESS [None]
  - OPERATIVE HAEMORRHAGE [None]
  - HAEMORRHAGE [None]
  - SENSORY DISTURBANCE [None]
  - PARALYSIS [None]
  - METABOLIC DISORDER [None]
  - INFARCTION [None]
  - DRUG INTERACTION [None]
  - HYPOXIA [None]
  - INJURY [None]
  - CONVERSION DISORDER [None]
  - UNRESPONSIVE TO STIMULI [None]
  - MENTAL DISORDER [None]
